FAERS Safety Report 21028896 (Version 1)
Quarter: 2022Q2

REPORT INFORMATION
  Report Type: Spontaneous
  Country: US (occurrence: US)
  Receive Date: 20220630
  Receipt Date: 20220630
  Transmission Date: 20220720
  Serious: Yes (Other)
  Sender: FDA-Public Use
  Company Number: US-PFIZER INC-PV202200011737

PATIENT
  Age: 49 Year
  Sex: Female

DRUGS (2)
  1. METOPROLOL TARTRATE [Interacting]
     Active Substance: METOPROLOL TARTRATE
  2. XELJANZ [Interacting]
     Active Substance: TOFACITINIB CITRATE
     Indication: Rheumatoid arthritis
     Dosage: UNK

REACTIONS (3)
  - Bradycardia [Unknown]
  - Drug interaction [Unknown]
  - Condition aggravated [Unknown]
